FAERS Safety Report 23441673 (Version 2)
Quarter: 2024Q1

REPORT INFORMATION
  Report Type: Spontaneous
  Country: US (occurrence: US)
  Receive Date: 20240125
  Receipt Date: 20240320
  Transmission Date: 20240410
  Serious: No
  Sender: FDA-Public Use
  Company Number: US-LUPIN PHARMACEUTICALS INC.-2024-00386

PATIENT

DRUGS (3)
  1. LEVALBUTEROL TARTRATE [Suspect]
     Active Substance: LEVALBUTEROL TARTRATE
     Indication: Product used for unknown indication
     Dosage: UNK
  2. LEVALBUTEROL TARTRATE [Suspect]
     Active Substance: LEVALBUTEROL TARTRATE
     Dosage: UNK
  3. LEVALBUTEROL TARTRATE [Suspect]
     Active Substance: LEVALBUTEROL TARTRATE
     Dosage: UNK
     Dates: start: 20240107

REACTIONS (3)
  - Dyspnoea [Unknown]
  - Drug dose omission by device [Unknown]
  - Device delivery system issue [Unknown]

NARRATIVE: CASE EVENT DATE: 20240109
